FAERS Safety Report 7564359-9 (Version None)
Quarter: 2011Q2

REPORT INFORMATION
  Report Type: 
  Country: None (occurrence: None)
  Receive Date: 20110622
  Receipt Date: 20110610
  Transmission Date: 20111010
  Serious: Yes (Hospitalization)
  Sender: FDA-Public Use
  Company Number: PHHY2011EC53022

PATIENT
  Sex: Female

DRUGS (3)
  1. LANICOR [Concomitant]
     Indication: HYPERTROPHIC CARDIOMYOPATHY
     Dosage: 0.25 MG, DAILY
     Dates: start: 20110315
  2. EXFORGE [Suspect]
     Indication: HYPERTENSION
     Dosage: 160 MG OF VALSARTAN AND 5 MG OF AMLODIPINE, DAILY
     Route: 048
     Dates: start: 20090101, end: 20110415
  3. BISOPROLOL FUMARATE [Concomitant]
     Indication: HYPERTENSION
     Dosage: 7.5 MG, DAILY
     Dates: start: 20110315

REACTIONS (3)
  - THROMBOSIS [None]
  - DRUG INTOLERANCE [None]
  - HEMIPLEGIA [None]
